FAERS Safety Report 7531320-X (Version None)
Quarter: 2011Q2

REPORT INFORMATION
  Report Type: 
  Country: None (occurrence: None)
  Receive Date: 20110602
  Receipt Date: 20110602
  Transmission Date: 20111010
  Serious: Yes (Hospitalization)
  Sender: FDA-Public Use
  Company Number: None

PATIENT
  Age: 64 Year
  Sex: Female
  Weight: 88.4514 kg

DRUGS (2)
  1. IV PREP WIPES SMITH NEPHEW [Suspect]
     Indication: DRUG THERAPY
     Dates: start: 20110101, end: 20110312
  2. IV PREP WIPES SMITH NEPHEW [Suspect]

REACTIONS (9)
  - INFLUENZA LIKE ILLNESS [None]
  - PRODUCT QUALITY ISSUE [None]
  - URINARY INCONTINENCE [None]
  - ASTHENIA [None]
  - PYREXIA [None]
  - INJECTION SITE URTICARIA [None]
  - HEADACHE [None]
  - PRODUCT CONTAMINATION [None]
  - BLOOD PRESSURE FLUCTUATION [None]
